FAERS Safety Report 9387710 (Version 1)
Quarter: 2013Q3

REPORT INFORMATION
  Report Type: Spontaneous
  Country: GB (occurrence: None)
  Receive Date: 20130701
  Receipt Date: 20130701
  Transmission Date: 20140515
  Serious: Yes (Death)
  Sender: FDA-Public Use
  Company Number: AUR-APL-2013-05207

PATIENT
  Age: 85 Year
  Sex: Female
  Weight: 60 kg

DRUGS (7)
  1. ALENDRONIC ACID [Suspect]
     Indication: RENAL FAILURE CHRONIC
     Route: 048
  2. ADCAL-D3(LEKOVIT CA) [Concomitant]
  3. BENDROFLUMETHIAZIDE(BENDROFLUMETHIAZIDE( [Concomitant]
  4. CO-CODAMOL(PANADEINE CO) [Concomitant]
  5. LANSOPRAZOLE(LANSOPRAZOLE) [Concomitant]
  6. LISINOPRIL(LISINOPRIL) [Concomitant]
  7. NORTRIPTYLINE [Suspect]

REACTIONS (2)
  - Oesophageal ulcer [None]
  - Gastrointestinal haemorrhage [None]
